FAERS Safety Report 15103385 (Version 2)
Quarter: 2018Q3

REPORT INFORMATION
  Report Type: Report from Study
  Country: US (occurrence: US)
  Receive Date: 20180703
  Receipt Date: 20180713
  Transmission Date: 20181010
  Serious: Yes (Other)
  Sender: FDA-Public Use
  Company Number: US-ASTRAZENECA-2017SF12242

PATIENT
  Age: 26779 Day
  Sex: Female

DRUGS (16)
  1. IMFINZI [Suspect]
     Active Substance: DURVALUMAB
     Indication: LUNG NEOPLASM MALIGNANT
     Dosage: UNKNOWN
     Route: 042
     Dates: start: 20171023, end: 20180205
  2. FENTANYL. [Concomitant]
     Active Substance: FENTANYL
     Route: 062
  3. NORCO [Concomitant]
     Active Substance: ACETAMINOPHEN\HYDROCODONE BITARTRATE
  4. PREDNISONE. [Concomitant]
     Active Substance: PREDNISONE
  5. TRAMADOL. [Concomitant]
     Active Substance: TRAMADOL
  6. IMFINZI [Suspect]
     Active Substance: DURVALUMAB
     Indication: LUNG NEOPLASM MALIGNANT
     Dosage: UNKNOWN
     Route: 042
     Dates: start: 20180226
  7. DEXAMETHASONE. [Concomitant]
     Active Substance: DEXAMETHASONE
     Route: 048
  8. ZOFRAN [Concomitant]
     Active Substance: ONDANSETRON HYDROCHLORIDE
  9. PREDNISONE. [Concomitant]
     Active Substance: PREDNISONE
  10. BETAMETHASONE. [Concomitant]
     Active Substance: BETAMETHASONE
     Dosage: 2 TIMES PER DAY
     Route: 061
  11. COMPAZINE [Concomitant]
     Active Substance: PROCHLORPERAZINE MALEATE
     Indication: NAUSEA
     Route: 048
  12. DOCUSATE SODIUM. [Concomitant]
     Active Substance: DOCUSATE SODIUM
     Route: 048
  13. MIRALAX [Concomitant]
     Active Substance: POLYETHYLENE GLYCOL 3350
  14. MAGIC MOUTHWASH [Concomitant]
     Active Substance: DIPHENHYDRAMINE HYDROCHLORIDE\LIDOCAINE HYDROCHLORIDE\NYSTATIN
     Dosage: 5.0ML AS REQUIRED
     Route: 048
  15. IMFINZI [Suspect]
     Active Substance: DURVALUMAB
     Indication: LUNG NEOPLASM MALIGNANT
     Dosage: 670.0MG UNKNOWN
     Route: 042
     Dates: start: 20171016
  16. IMFINZI [Suspect]
     Active Substance: DURVALUMAB
     Indication: LUNG NEOPLASM MALIGNANT
     Dosage: UNKNOWN
     Route: 042
     Dates: start: 20180409

REACTIONS (26)
  - Bone pain [Unknown]
  - Wheezing [Unknown]
  - Chest discomfort [Unknown]
  - Malaise [Unknown]
  - Hyperglycaemia [Unknown]
  - Palpitations [Unknown]
  - Back pain [Recovering/Resolving]
  - Pain in extremity [Recovering/Resolving]
  - Limb injury [Unknown]
  - Arthritis [Unknown]
  - Cough [Recovering/Resolving]
  - Constipation [Unknown]
  - Nausea [Recovered/Resolved]
  - Chest pain [Recovered/Resolved]
  - Epistaxis [Unknown]
  - Myalgia [Unknown]
  - Fall [Unknown]
  - Back injury [Unknown]
  - Pain [Unknown]
  - Rheumatoid arthritis [Recovered/Resolved]
  - Arthralgia [Not Recovered/Not Resolved]
  - Loss of personal independence in daily activities [Unknown]
  - Cataract [Unknown]
  - Neck pain [Unknown]
  - Tachycardia [Unknown]
  - Fatigue [Not Recovered/Not Resolved]

NARRATIVE: CASE EVENT DATE: 20171021
